FAERS Safety Report 6306174-X (Version None)
Quarter: 2009Q3

REPORT INFORMATION
  Report Type: 
  Country: None (occurrence: None)
  Receive Date: 20090812
  Receipt Date: 20090730
  Transmission Date: 20100115
  Serious: No
  Sender: FDA-Public Use
  Company Number: GB-ROCHE-647920

PATIENT
  Age: 20 Week
  Sex: Male

DRUGS (2)
  1. TAMIFLU [Suspect]
     Indication: DRUG USE FOR UNKNOWN INDICATION
     Route: 065
  2. TAMIFLU [Suspect]
     Route: 065

REACTIONS (3)
  - MALAISE [None]
  - UNDERDOSE [None]
  - VOMITING [None]
